FAERS Safety Report 20904913 (Version 1)
Quarter: 2022Q2

REPORT INFORMATION
  Report Type: Spontaneous
  Country: US (occurrence: None)
  Receive Date: 20220601
  Receipt Date: 20220601
  Transmission Date: 20220721
  Serious: Yes (Hospitalization)
  Sender: FDA-Public Use
  Company Number: None

PATIENT
  Age: 84 Year
  Sex: Male
  Weight: 81 kg

DRUGS (1)
  1. DEXTENZA [Suspect]
     Active Substance: DEXAMETHASONE
     Indication: Inflammation
     Dosage: FREQUENCY : ONCE;?
     Route: 061

REACTIONS (2)
  - Thrombosis [None]
  - Arterial occlusive disease [None]

NARRATIVE: CASE EVENT DATE: 20220528
